FAERS Safety Report 24132837 (Version 5)
Quarter: 2025Q1

REPORT INFORMATION
  Report Type: Spontaneous
  Country: US (occurrence: US)
  Receive Date: 20240724
  Receipt Date: 20250312
  Transmission Date: 20250408
  Serious: No
  Sender: SANOFI AVENTIS
  Company Number: US-SA-SAC20240722001147

PATIENT
  Age: 22 Year
  Sex: Female

DRUGS (2)
  1. DUPIXENT [Suspect]
     Active Substance: DUPILUMAB
     Indication: Dermatitis atopic
     Route: 058
     Dates: start: 202406, end: 202406
  2. DUPIXENT [Suspect]
     Active Substance: DUPILUMAB
     Indication: Dermatitis
     Dosage: 300 MG, QOW
     Route: 058
     Dates: start: 2024

REACTIONS (21)
  - Food allergy [Unknown]
  - Feeling hot [Unknown]
  - Hyperhidrosis [Unknown]
  - Dyspnoea [Unknown]
  - Anxiety [Unknown]
  - Abdominal discomfort [Unknown]
  - Decreased appetite [Unknown]
  - Malaise [Unknown]
  - Adverse food reaction [Unknown]
  - Pain in extremity [Unknown]
  - Nausea [Recovered/Resolved]
  - Eczema [Recovering/Resolving]
  - Pain [Unknown]
  - Eye irritation [Unknown]
  - Lacrimation increased [Unknown]
  - Pain of skin [Unknown]
  - Erythema [Unknown]
  - Rash [Unknown]
  - Arthralgia [Unknown]
  - Eye pruritus [Unknown]
  - Product use in unapproved indication [Unknown]

NARRATIVE: CASE EVENT DATE: 20240101
